FAERS Safety Report 20684219 (Version 2)
Quarter: 2022Q2

REPORT INFORMATION
  Report Type: Report from Study
  Country: IL (occurrence: IL)
  Receive Date: 20220407
  Receipt Date: 20220411
  Transmission Date: 20220721
  Serious: Yes (Other)
  Sender: FDA-Public Use
  Company Number: IL-ABBVIE-22K-082-4346570-00

PATIENT
  Sex: Male

DRUGS (3)
  1. CARBIDOPA\LEVODOPA [Suspect]
     Active Substance: CARBIDOPA\LEVODOPA
     Indication: Parkinson^s disease
     Dosage: INCREASED
     Route: 050
     Dates: start: 20220301, end: 2022
  2. CARBIDOPA\LEVODOPA [Suspect]
     Active Substance: CARBIDOPA\LEVODOPA
     Dosage: MD(ML)  15.5, CD (ML/H)  3.5, ED (ML)  1.5?CD INCREASED IN 0.2 (ML/H)
     Route: 050
     Dates: start: 2022
  3. MIRO [Concomitant]
     Indication: Product used for unknown indication
     Dosage: INCREASED DOSE

REACTIONS (5)
  - Feeling abnormal [Unknown]
  - Mood altered [Recovering/Resolving]
  - Pain in extremity [Unknown]
  - On and off phenomenon [Unknown]
  - Neuropathy peripheral [Unknown]

NARRATIVE: CASE EVENT DATE: 20220101
